FAERS Safety Report 25356238 (Version 1)
Quarter: 2025Q2

REPORT INFORMATION
  Report Type: Report from Study
  Country: US (occurrence: US)
  Receive Date: 20250526
  Receipt Date: 20250526
  Transmission Date: 20250717
  Serious: Yes (Other)
  Sender: ALEXION PHARMACEUTICALS
  Company Number: US-AstraZeneca-CH-00874089A

PATIENT

DRUGS (1)
  1. ACALABRUTINIB [Suspect]
     Active Substance: ACALABRUTINIB
     Indication: Chronic lymphocytic leukaemia
     Dosage: 100 MILLIGRAM, QD

REACTIONS (8)
  - Skin cancer [Unknown]
  - Transient ischaemic attack [Unknown]
  - Trigger finger [Unknown]
  - Memory impairment [Unknown]
  - Dizziness [Unknown]
  - Fall [Unknown]
  - Precancerous condition [Unknown]
  - Pelvic fracture [Unknown]
